FAERS Safety Report 22346265 (Version 1)
Quarter: 2023Q2

REPORT INFORMATION
  Report Type: Spontaneous
  Country: AU (occurrence: AU)
  Receive Date: 20230519
  Receipt Date: 20230519
  Transmission Date: 20230722
  Serious: Yes (Other)
  Sender: FDA-Public Use
  Company Number: AU-LUNDBECK-DKLU3055037

PATIENT
  Age: 20 Year
  Sex: Male

DRUGS (7)
  1. ABILIFY MAINTENA [Suspect]
     Active Substance: ARIPIPRAZOLE
     Indication: Product used for unknown indication
     Dosage: 400 MG, QM
     Route: 030
  2. CLOZAPINE [Suspect]
     Active Substance: CLOZAPINE
     Indication: Schizophrenia
     Dosage: 500 MG
     Route: 065
     Dates: start: 20210316
  3. CLOZAPINE [Suspect]
     Active Substance: CLOZAPINE
     Dosage: 450 MG
     Route: 065
     Dates: start: 20220127
  4. CLOZAPINE [Suspect]
     Active Substance: CLOZAPINE
     Dosage: 500 MG
     Route: 065
  5. CLOZAPINE [Suspect]
     Active Substance: CLOZAPINE
     Dosage: NOCTE
     Route: 065
  6. CLOZAPINE [Suspect]
     Active Substance: CLOZAPINE
     Dosage: UNK
     Route: 065
     Dates: end: 20220727
  7. VERSACLOZ [Concomitant]
     Active Substance: CLOZAPINE
     Indication: Product used for unknown indication
     Dosage: 500 MG, QM
     Route: 065
     Dates: start: 20220622

REACTIONS (16)
  - Pulmonary valve incompetence [Unknown]
  - Mitral valve incompetence [Unknown]
  - Cardiomyopathy [Unknown]
  - Myocardial infarction [Unknown]
  - White blood cell count decreased [Recovered/Resolved]
  - Cardiac disorder [Unknown]
  - C-reactive protein increased [Unknown]
  - Red blood cell count increased [Unknown]
  - Supraventricular extrasystoles [Unknown]
  - QRS axis abnormal [Unknown]
  - Blood urea increased [Unknown]
  - Sinus tachycardia [Unknown]
  - Palpitations [Unknown]
  - Tachycardia [Unknown]
  - Treatment noncompliance [Unknown]
  - Therapy interrupted [Unknown]

NARRATIVE: CASE EVENT DATE: 20220202
